FAERS Safety Report 25725019 (Version 1)
Quarter: 2025Q3

REPORT INFORMATION
  Report Type: Spontaneous
  Country: US (occurrence: US)
  Receive Date: 20250826
  Receipt Date: 20250826
  Transmission Date: 20251020
  Serious: No
  Sender: AMNEAL
  Company Number: US-AMNEAL PHARMACEUTICALS-2025-AMRX-02926

PATIENT
  Age: 62 Year
  Sex: Female
  Weight: 54.422 kg

DRUGS (2)
  1. CREXONT [Suspect]
     Active Substance: CARBIDOPA\LEVODOPA
     Indication: Parkinson^s disease
     Dosage: 52.5-210 MG 2 TABLETS, 3 /DAY
     Route: 048
     Dates: start: 20250701, end: 20250724
  2. ENTACAPONE [Concomitant]
     Active Substance: ENTACAPONE
     Indication: Product used for unknown indication
     Route: 065

REACTIONS (2)
  - Sleep attacks [Recovered/Resolved]
  - Libido increased [Recovered/Resolved]

NARRATIVE: CASE EVENT DATE: 20250708
